FAERS Safety Report 4580989-0 (Version None)
Quarter: 2005Q1

REPORT INFORMATION
  Report Type: 
  Country: None (occurrence: None)
  Receive Date: 20050127
  Receipt Date: 20040819
  Transmission Date: 20050727
  Serious: No
  Sender: FDA-Public Use
  Company Number: USA040876047

PATIENT
  Age: 6 Year
  Sex: Male
  Weight: 14 kg

DRUGS (5)
  1. STRATTERA [Suspect]
     Indication: ATTENTION DEFICIT/HYPERACTIVITY DISORDER
     Dosage: 25 MG DAY
     Dates: start: 20040811
  2. ZYRTEC [Concomitant]
  3. ZANTAC [Concomitant]
  4. METOCLOPRAMIDE [Concomitant]
  5. VITAMINS [Concomitant]

REACTIONS (3)
  - ABNORMAL BEHAVIOUR [None]
  - HEART RATE INCREASED [None]
  - PRESCRIBED OVERDOSE [None]
